FAERS Safety Report 17025487 (Version 1)
Quarter: 2019Q4

REPORT INFORMATION
  Report Type: Report from Study
  Country: GB (occurrence: GB)
  Receive Date: 20191113
  Receipt Date: 20191113
  Transmission Date: 20200122
  Serious: Yes (Other)
  Sender: FDA-Public Use
  Company Number: PHHY2014GB114251

PATIENT
  Sex: Male

DRUGS (1)
  1. GILENYA [Suspect]
     Active Substance: FINGOLIMOD HYDROCHLORIDE
     Indication: MULTIPLE SCLEROSIS
     Dosage: QD
     Route: 048
     Dates: start: 20130916

REACTIONS (6)
  - Fatigue [Unknown]
  - Erectile dysfunction [Unknown]
  - Mobility decreased [Unknown]
  - Nasopharyngitis [Unknown]
  - Oral herpes [Unknown]
  - Contusion [Unknown]
